FAERS Safety Report 7287625-3 (Version None)
Quarter: 2011Q1

REPORT INFORMATION
  Report Type: 
  Country: None (occurrence: None)
  Receive Date: 20110208
  Receipt Date: 20110208
  Transmission Date: 20110831
  Serious: Yes (Hospitalization)
  Sender: FDA-Public Use
  Company Number: None

PATIENT
  Age: 23 Year
  Sex: Female
  Weight: 61.8 kg

DRUGS (1)
  1. ONDANSETRON. [Suspect]
     Indication: NAUSEA

REACTIONS (3)
  - URTICARIA [None]
  - PRURITUS [None]
  - DYSPNOEA [None]
